FAERS Safety Report 8416164-9 (Version None)
Quarter: 2012Q2

REPORT INFORMATION
  Report Type: 
  Country: None (occurrence: None)
  Receive Date: 20120530
  Receipt Date: 20120516
  Transmission Date: 20120825
  Serious: Yes (Hospitalization, Other)
  Sender: FDA-Public Use
  Company Number: AUR-APL-2012-02185

PATIENT
  Age: 67 Year
  Sex: Female

DRUGS (9)
  1. CITALOPRAM HYDROBROMIDE [Concomitant]
  2. ACETAMINOPHEN W/ CODEINE [Concomitant]
  3. FOLIC ACID [Concomitant]
  4. THEOPHYLLINE [Concomitant]
  5. CACIT VITAMIN D3 (LEKOVIT CA) [Concomitant]
  6. DIAZEPAM [Concomitant]
  7. TEMAZEPAM [Concomitant]
  8. ALENDRONIC ACID (ALENDRONIC ACID) [Suspect]
     Indication: PRODUCT USED FOR UNKNOWN INDICATION
  9. DUROGESIC DTRANS (FENTANYL) [Concomitant]

REACTIONS (1)
  - EPISTAXIS [None]
